FAERS Safety Report 19973424 (Version 1)
Quarter: 2021Q4

REPORT INFORMATION
  Report Type: Spontaneous
  Country: NL (occurrence: NL)
  Receive Date: 20211020
  Receipt Date: 20211020
  Transmission Date: 20220303
  Serious: Yes (Other)
  Sender: FDA-Public Use
  Company Number: NL-BRISTOL-MYERS SQUIBB COMPANY-BMS-2021-081332

PATIENT
  Age: 65 Year
  Sex: Female
  Weight: 74 kg

DRUGS (6)
  1. ORENCIA [Suspect]
     Active Substance: ABATACEPT
     Indication: Rheumatic disorder
     Dosage: 125 MILLIGRAM, QWK, ON SUNDAY
     Route: 065
     Dates: start: 20190331
  2. ORENCIA [Suspect]
     Active Substance: ABATACEPT
     Indication: Rheumatoid arthritis
  3. FOLIC ACID [Concomitant]
     Active Substance: FOLIC ACID
     Indication: Product used for unknown indication
     Dosage: UNK,5 DAYS A WEEK
     Route: 065
  4. OLODATEROL HYDROCHLORIDE\TIOTROPIUM BROMIDE MONOHYDRATE [Concomitant]
     Active Substance: OLODATEROL HYDROCHLORIDE\TIOTROPIUM BROMIDE MONOHYDRATE
     Indication: Product used for unknown indication
     Dosage: UNK,2 INHALATIONS EVERY MORNING
     Dates: start: 201901
  5. VITAMINS NOS [Concomitant]
     Active Substance: VITAMINS
     Indication: Product used for unknown indication
     Route: 065
  6. TEMAZEPAM [Concomitant]
     Active Substance: TEMAZEPAM
     Indication: Sleep disorder
     Route: 065

REACTIONS (26)
  - Pneumonia [Unknown]
  - Infective exacerbation of chronic obstructive airways disease [Unknown]
  - Upper respiratory tract infection [Unknown]
  - Urinary tract infection [Unknown]
  - Headache [Recovered/Resolved]
  - Dizziness [Unknown]
  - Abdominal pain [Unknown]
  - Diarrhoea [Unknown]
  - Nausea [Unknown]
  - Mouth ulceration [Unknown]
  - Fatigue [Recovered/Resolved]
  - Dry eye [Unknown]
  - Visual impairment [Unknown]
  - Palpitations [Unknown]
  - Hot flush [Unknown]
  - Nasal congestion [Unknown]
  - Sneezing [Unknown]
  - Increased tendency to bruise [Unknown]
  - Rhinorrhoea [Unknown]
  - Alopecia [Unknown]
  - Arthralgia [Unknown]
  - Pain in extremity [Unknown]
  - Weight increased [Unknown]
  - Emphysema [Unknown]
  - Myalgia [Unknown]
  - Cough [Recovered/Resolved]

NARRATIVE: CASE EVENT DATE: 20200316
